FAERS Safety Report 18206211 (Version 2)
Quarter: 2020Q3

REPORT INFORMATION
  Report Type: Spontaneous
  Country: US (occurrence: US)
  Receive Date: 20200827
  Receipt Date: 20200930
  Transmission Date: 20201103
  Serious: No
  Sender: FDA-Public Use
  Company Number: US-ASTRAZENECA-2020SF05979

PATIENT
  Age: 870 Month
  Sex: Female
  Weight: 117.9 kg

DRUGS (8)
  1. ATORVASTATIN [Concomitant]
     Active Substance: ATORVASTATIN
     Indication: BLOOD CHOLESTEROL
     Route: 048
  2. PRAMIPEXOLE. [Concomitant]
     Active Substance: PRAMIPEXOLE
     Indication: RESTLESS LEGS SYNDROME
     Route: 048
  3. BYDUREON BCISE [Suspect]
     Active Substance: EXENATIDE
     Indication: DIABETES MELLITUS
     Route: 065
     Dates: start: 202006
  4. ISOSORBIDE MENER [Concomitant]
     Indication: BLOOD PRESSURE ABNORMAL
     Route: 048
  5. ELIQUISE [Concomitant]
     Indication: ATRIAL FIBRILLATION
     Route: 048
  6. NOVALIN [Concomitant]
     Indication: DIABETES MELLITUS
     Route: 065
  7. METFORMIN ER [Concomitant]
     Active Substance: METFORMIN HYDROCHLORIDE
     Indication: DIABETES MELLITUS
     Route: 048
  8. METOPROLOL SUCC ER [Concomitant]
     Active Substance: METOPROLOL SUCCINATE
     Indication: BLOOD PRESSURE MEASUREMENT
     Route: 048

REACTIONS (6)
  - Device leakage [Unknown]
  - Injection site extravasation [Unknown]
  - Injection site nodule [Unknown]
  - Memory impairment [Unknown]
  - Cardiac disorder [Unknown]
  - Wrong technique in device usage process [Unknown]

NARRATIVE: CASE EVENT DATE: 202006
